FAERS Safety Report 7937439-3 (Version None)
Quarter: 2011Q4

REPORT INFORMATION
  Report Type: 
  Country: None (occurrence: None)
  Receive Date: 20111123
  Receipt Date: 20111117
  Transmission Date: 20120403
  Serious: Yes (Hospitalization)
  Sender: FDA-Public Use
  Company Number: GB-JNJFOC-20111107708

PATIENT
  Age: 81 Year
  Sex: Female

DRUGS (3)
  1. REMICADE [Suspect]
     Indication: RHEUMATOID ARTHRITIS
     Route: 042
     Dates: start: 20041102
  2. AZULFIDINE [Concomitant]
  3. METHOTREXATE [Concomitant]

REACTIONS (1)
  - SKIN ULCER [None]
